FAERS Safety Report 7503236-6 (Version None)
Quarter: 2011Q2

REPORT INFORMATION
  Report Type: 
  Country: None (occurrence: None)
  Receive Date: 20110525
  Receipt Date: 20100520
  Transmission Date: 20111010
  Serious: No
  Sender: FDA-Public Use
  Company Number: A0863234A

PATIENT
  Sex: Female

DRUGS (1)
  1. BACTROBAN [Suspect]
     Indication: NASAL ULCER
     Route: 065

REACTIONS (2)
  - NASAL DISCOMFORT [None]
  - HEART RATE IRREGULAR [None]
